FAERS Safety Report 14241288 (Version 1)
Quarter: 2017Q4

REPORT INFORMATION
  Report Type: Report from Study
  Country: US (occurrence: US)
  Receive Date: 20171130
  Receipt Date: 20171130
  Transmission Date: 20180321
  Serious: Yes (Death, Hospitalization)
  Sender: FDA-Public Use
  Company Number: PHEH2017US038520

PATIENT
  Age: 52 Year
  Sex: Male
  Weight: 76.2 kg

DRUGS (1)
  1. VOTRIENT [Suspect]
     Active Substance: PAZOPANIB HYDROCHLORIDE
     Indication: PRODUCT USED FOR UNKNOWN INDICATION
     Dosage: UNK
     Route: 065

REACTIONS (4)
  - Hyperhidrosis [Unknown]
  - Death [Fatal]
  - Blood pressure decreased [Unknown]
  - Pulse absent [Unknown]

NARRATIVE: CASE EVENT DATE: 20171110
